FAERS Safety Report 8133527-X (Version None)
Quarter: 2012Q1

REPORT INFORMATION
  Report Type: 
  Country: None (occurrence: None)
  Receive Date: 20120213
  Receipt Date: 20120207
  Transmission Date: 20120608
  Serious: Yes (Hospitalization, Other)
  Sender: FDA-Public Use
  Company Number: US-PFIZER INC-2012016337

PATIENT
  Sex: Female
  Weight: 65.76 kg

DRUGS (12)
  1. GLUCOTROL XL [Suspect]
     Dosage: 10MG AM, 5MG PM; DAILY
     Route: 048
     Dates: start: 20050304
  2. BUMEX [Concomitant]
     Indication: OEDEMA
     Dosage: 1 MG, DAILY
  3. CELEBREX [Suspect]
     Indication: PAIN
  4. METFORMIN [Concomitant]
     Indication: DIABETES MELLITUS
     Dosage: 500 MG, 2X/DAY
  5. NIACIN [Concomitant]
     Indication: HYPERLIPIDAEMIA
     Dosage: 500 MG, 2X/DAY
     Dates: start: 20090101
  6. INSULIN [Concomitant]
     Indication: DIABETES MELLITUS
     Dosage: UNK
  7. CELEBREX [Suspect]
     Indication: ARTHRITIS
     Dosage: 200 MG DAILY
     Route: 048
     Dates: start: 19950101, end: 20111117
  8. BUMEX [Concomitant]
     Indication: CORONARY ARTERY DISEASE
  9. ASPIRIN [Concomitant]
     Indication: CORONARY ARTERY DISEASE
     Dosage: 325 MG, DAILY
  10. METOPROLOL [Concomitant]
     Indication: CORONARY ARTERY DISEASE
     Dosage: 75 MG, 2X/DAY
  11. CELEBREX [Suspect]
     Indication: OSTEOARTHRITIS
  12. GLUCOTROL XL [Suspect]
     Indication: DIABETES MELLITUS
     Dosage: 10MG IN MORNING AND 5MG AT NIGHT
     Route: 048
     Dates: start: 20000101, end: 20111117

REACTIONS (4)
  - WRIST FRACTURE [None]
  - UPPER LIMB FRACTURE [None]
  - HIP FRACTURE [None]
  - FALL [None]
